FAERS Safety Report 14169282 (Version 1)
Quarter: 2017Q4

REPORT INFORMATION
  Report Type: Spontaneous
  Country: US (occurrence: US)
  Receive Date: 20171107
  Receipt Date: 20171107
  Transmission Date: 20180321
  Serious: No
  Sender: FDA-Public Use
  Company Number: US-009507513-1711USA002628

PATIENT
  Sex: Male
  Weight: .54 kg

DRUGS (8)
  1. HEXADROL [Suspect]
     Active Substance: DEXAMETHASONE
     Dosage: 10-DAY COURSES OF DEXAMETHASONE ON DAYS OF LIFE 15 TO 25 AND 47 TO 57
  2. ETOPOSIDE. [Suspect]
     Active Substance: ETOPOSIDE
     Indication: HISTIOCYTOSIS HAEMATOPHAGIC
     Dosage: 150 MG/M2, QW
  3. VALGANCICLOVIR HYDROCHLORIDE. [Concomitant]
     Active Substance: VALGANCICLOVIR HYDROCHLORIDE
     Indication: CYTOMEGALOVIRUS INFECTION
     Dosage: 16 MG/KG, BID
  4. ETOPOSIDE. [Suspect]
     Active Substance: ETOPOSIDE
     Dosage: 150 MG/M2, BIW
  5. HEXADROL [Suspect]
     Active Substance: DEXAMETHASONE
     Indication: NEONATAL RESPIRATORY FAILURE
     Dosage: 4 MG/M2, QOD (WAS REDUCED 20% EVERY OTHER DAY FOR 10 DAYS UNTIL DISCONTINUED
  6. CYCLOSPORINE. [Suspect]
     Active Substance: CYCLOSPORINE
     Indication: HISTIOCYTOSIS HAEMATOPHAGIC
     Dosage: 5 MG/KG, QD
  7. HEXADROL [Suspect]
     Active Substance: DEXAMETHASONE
     Indication: HISTIOCYTOSIS HAEMATOPHAGIC
     Dosage: 5 MG/M2, BID
  8. CYCLOSPORINE. [Suspect]
     Active Substance: CYCLOSPORINE
     Dosage: 2 MG/KG, QD

REACTIONS (2)
  - Hirsutism [Recovered/Resolved]
  - Hypertension [Recovered/Resolved]
